FAERS Safety Report 6238257-7 (Version None)
Quarter: 2009Q2

REPORT INFORMATION
  Report Type: 
  Country: None (occurrence: None)
  Receive Date: 20090617
  Receipt Date: 20090617
  Transmission Date: 20091009
  Serious: No
  Sender: FDA-Public Use
  Company Number: None

PATIENT
  Age: 67 Year
  Sex: Female

DRUGS (1)
  1. LAMOTRIGINE [Suspect]

REACTIONS (6)
  - HEAD TITUBATION [None]
  - HEADACHE [None]
  - HYPERVENTILATION [None]
  - HYPOAESTHESIA [None]
  - INSOMNIA [None]
  - TREMOR [None]
